FAERS Safety Report 5629661-6 (Version None)
Quarter: 2008Q1

REPORT INFORMATION
  Report Type: 
  Country: None (occurrence: None)
  Receive Date: 20080218
  Receipt Date: 20080207
  Transmission Date: 20080703
  Serious: Yes (Life-Threatening, Hospitalization)
  Sender: FDA-Public Use
  Company Number: B0504378A

PATIENT
  Age: 29 Year
  Sex: Female
  Weight: 56 kg

DRUGS (7)
  1. KIVEXA [Suspect]
     Indication: HIV INFECTION
     Dosage: 1TAB PER DAY
     Route: 048
     Dates: start: 20071122, end: 20071213
  2. VIRAMUNE [Suspect]
     Indication: HIV INFECTION
     Dosage: 2TAB PER DAY
     Dates: start: 20070510, end: 20071219
  3. COMBIVIR [Concomitant]
     Indication: HIV INFECTION
     Dosage: 2TAB PER DAY
     Route: 048
     Dates: start: 20050510, end: 20071122
  4. COMBIVIR [Concomitant]
     Dosage: 2TAB PER DAY
     Route: 048
     Dates: start: 20071213, end: 20071219
  5. TEBRAZID [Concomitant]
     Route: 048
     Dates: start: 20070119, end: 20071219
  6. MYCOBUTIN [Concomitant]
     Dosage: 2CAP PER DAY
     Route: 048
     Dates: start: 20070510, end: 20071219
  7. AVELOX [Concomitant]
     Dosage: 1TAB PER DAY
     Route: 048
     Dates: start: 20070119, end: 20071219

REACTIONS (8)
  - ANOREXIA [None]
  - BLOOD BILIRUBIN INCREASED [None]
  - HEPATIC ENZYME INCREASED [None]
  - HEPATITIS [None]
  - JAUNDICE [None]
  - NAUSEA [None]
  - TRANSAMINASES INCREASED [None]
  - VOMITING [None]
